FAERS Safety Report 6181730-0 (Version None)
Quarter: 2009Q2

REPORT INFORMATION
  Report Type: 
  Country: None (occurrence: None)
  Receive Date: 20090506
  Receipt Date: 20090422
  Transmission Date: 20091009
  Serious: Yes (Other)
  Sender: FDA-Public Use
  Company Number: US-GENENTECH-278810

PATIENT
  Age: 78 Year
  Sex: Female

DRUGS (1)
  1. RANIBIZUMAB [Suspect]
     Indication: DRUG USE FOR UNKNOWN INDICATION
     Route: 061

REACTIONS (1)
  - RETINAL PIGMENT EPITHELIAL TEAR [None]
